FAERS Safety Report 6119978-3 (Version None)
Quarter: 2009Q1

REPORT INFORMATION
  Report Type: 
  Country: None (occurrence: None)
  Receive Date: 20090316
  Receipt Date: 20090304
  Transmission Date: 20090719
  Serious: Yes (Other)
  Sender: FDA-Public Use
  Company Number: US-ELI_LILLY_AND_COMPANY-US200901003839

PATIENT
  Age: 59 Year
  Sex: Female

DRUGS (10)
  1. ZYPREXA [Suspect]
     Indication: MOOD ALTERED
     Dosage: UNK, UNK
     Dates: start: 20070101
  2. ZYPREXA [Suspect]
     Dosage: 2.5 MG, UNK
  3. ZYPREXA [Suspect]
     Dosage: 5 MG, DAILY (1/D)
     Dates: start: 20090101, end: 20090101
  4. DEPAKOTE [Concomitant]
     Dosage: 500 MG, UNK
  5. ZOLOFT [Concomitant]
     Dosage: 200 MG, UNK
  6. ESTRADIOL [Concomitant]
     Dosage: 2 MG, UNK
  7. SKELAXIN [Concomitant]
     Dosage: 800 MG, 2/D
  8. ZANTAC [Concomitant]
     Dosage: UNK, 3/D
  9. ULTRAM [Concomitant]
     Dosage: UNK, 2/D
  10. LORA TAB [Concomitant]
     Dosage: UNK, DAILY (1/D)

REACTIONS (4)
  - CHEST DISCOMFORT [None]
  - DYSPNOEA [None]
  - OEDEMA PERIPHERAL [None]
  - PULMONARY EMBOLISM [None]
